FAERS Safety Report 11977237 (Version 2)
Quarter: 2016Q1

REPORT INFORMATION
  Report Type: Spontaneous
  Country: US (occurrence: US)
  Receive Date: 20160129
  Receipt Date: 20160201
  Transmission Date: 20160526
  Serious: No
  Sender: FDA-Public Use
  Company Number: US-GLAXOSMITHKLINE-US2016007007

PATIENT
  Sex: Male

DRUGS (5)
  1. COREG CR [Suspect]
     Active Substance: CARVEDILOL PHOSPHATE
     Indication: CARDIAC DISORDER
     Dosage: 40 MG, 1D
     Route: 048
  2. COREG CR [Suspect]
     Active Substance: CARVEDILOL PHOSPHATE
     Indication: BLOOD PRESSURE ABNORMAL
     Dosage: 20 MG, UNK
     Route: 048
     Dates: start: 2013
  3. CARVEDILOL PHOSPHATE. [Suspect]
     Active Substance: CARVEDILOL PHOSPHATE
     Indication: PRODUCT USED FOR UNKNOWN INDICATION
     Dosage: UNK
  4. CHLOROTHIAZIDE. [Concomitant]
     Active Substance: CHLOROTHIAZIDE
  5. BAYER ASPIRIN [Concomitant]
     Active Substance: ASPIRIN

REACTIONS (7)
  - Nervous system disorder [Unknown]
  - Drug ineffective [Unknown]
  - Treatment noncompliance [Unknown]
  - Headache [Unknown]
  - Tension headache [Unknown]
  - Social fear [Unknown]
  - Tinnitus [Unknown]
